FAERS Safety Report 7685642-2 (Version None)
Quarter: 2011Q3

REPORT INFORMATION
  Report Type: 
  Country: None (occurrence: None)
  Receive Date: 20110815
  Receipt Date: 20110815
  Transmission Date: 20111222
  Serious: Yes (Life-Threatening)
  Sender: FDA-Public Use
  Company Number: None

PATIENT
  Sex: Male
  Weight: 103.4201 kg

DRUGS (1)
  1. AMITIZA [Suspect]
     Indication: CONSTIPATION
     Dates: start: 20110701

REACTIONS (6)
  - FAECES DISCOLOURED [None]
  - FAECES HARD [None]
  - CRYSTAL DEPOSIT INTESTINE [None]
  - GASTROINTESTINAL PAIN [None]
  - BACK PAIN [None]
  - ABNORMAL FAECES [None]
